FAERS Safety Report 14411730 (Version 3)
Quarter: 2018Q2

REPORT INFORMATION
  Report Type: Not Available
  Country: US (occurrence: US)
  Receive Date: 20180119
  Receipt Date: 20180508
  Transmission Date: 20180711
  Serious: No
  Sender: FDA-Public Use
  Company Number: US-NEUROCRINE BIOSCIENCES INC.-2017NBI02081

PATIENT
  Sex: Male

DRUGS (11)
  1. OLANZAPINE ODT [Concomitant]
     Active Substance: OLANZAPINE
     Indication: ANGER
  2. LISINOPRIL. [Concomitant]
     Active Substance: LISINOPRIL
     Indication: HYPERTENSION
     Route: 048
  3. OLANZAPINE ODT [Concomitant]
     Active Substance: OLANZAPINE
     Indication: FRUSTRATION TOLERANCE DECREASED
  4. COLACE [Concomitant]
     Active Substance: DOCUSATE SODIUM
     Indication: CONSTIPATION
     Route: 048
  5. INGREZZA [Suspect]
     Active Substance: VALBENAZINE
     Route: 048
     Dates: start: 20171111
  6. OLANZAPINE ODT [Concomitant]
     Active Substance: OLANZAPINE
     Indication: IMPULSIVE BEHAVIOUR
     Dosage: 20 MG TAKE ONE TABLET UNDER THE TONGUE AT BEDTIME
     Route: 048
  7. DIVALPROEX ER [Concomitant]
     Active Substance: DIVALPROEX SODIUM
     Indication: INSOMNIA
     Dosage: 500 MG 2 TABLETS AT BEDTIME
     Route: 048
  8. ROSUVASTATIN. [Concomitant]
     Active Substance: ROSUVASTATIN
     Indication: BLOOD CHOLESTEROL ABNORMAL
     Route: 048
  9. DOXAZOSIN [Concomitant]
     Active Substance: DOXAZOSIN\DOXAZOSIN MESYLATE
     Indication: DYSURIA
     Dosage: 4 MG ONE TABLET EVERY DAY
     Route: 048
  10. INGREZZA [Suspect]
     Active Substance: VALBENAZINE
     Indication: DYSKINESIA
     Route: 048
     Dates: start: 20170712
  11. HYDRALAZINE [Concomitant]
     Active Substance: HYDRALAZINE HYDROCHLORIDE
     Indication: NERVOUSNESS
     Dosage: 50 MG TWICE A DAY (ONCE IN THE MORNING AND ONCE AT NIGHT)
     Route: 048

REACTIONS (1)
  - Restlessness [Recovering/Resolving]
